FAERS Safety Report 23893944 (Version 1)
Quarter: 2024Q2

REPORT INFORMATION
  Report Type: Spontaneous
  Country: GB (occurrence: GB)
  Receive Date: 20240524
  Receipt Date: 20240524
  Transmission Date: 20240715
  Serious: Yes (Other)
  Sender: FDA-Public Use
  Company Number: None

PATIENT
  Age: 86 Year
  Sex: Female
  Weight: 70 kg

DRUGS (14)
  1. AMLODIPINE [Suspect]
     Active Substance: AMLODIPINE BESYLATE
     Route: 048
     Dates: start: 20231018
  2. HYALURONATE SODIUM [Concomitant]
     Active Substance: HYALURONATE SODIUM
     Dosage: ONE DROP FOUR TIMES A DAY TO BOTH EYES - INDEFI...
     Dates: start: 20230921
  3. ZEROBASE [Concomitant]
     Dosage: TWICE A DAY ON THE SKIN AND AS A SOAP SUBSTITUTE, DURATION: 362 DAYS
     Dates: start: 20230517, end: 20240513
  4. OMEPRAZOLE [Concomitant]
     Active Substance: DONEPEZIL HYDROCHLORIDE\OMEPRAZOLE\OMEPRAZOLE MAGNESIUM
     Dosage: ONE TO BE TAKEN EACH DAY - TAKE 2 HOURS AWAY FR...
     Dates: start: 20230327
  5. SIMVASTATIN [Concomitant]
     Active Substance: SIMVASTATIN
     Dosage: NIGHT
     Dates: start: 20230327
  6. UNSPECIFIED INGREDIENT [Concomitant]
     Active Substance: UNSPECIFIED INGREDIENT
     Dosage: APPLY TWICE A DAY ONTO LEGS
     Dates: start: 20240513
  7. UNSPECIFIED INGREDIENT [Concomitant]
     Active Substance: UNSPECIFIED INGREDIENT
     Dosage: AS DIRECTED BY SPECIALIST
     Dates: start: 20230327
  8. LEVOTHYROXINE [Concomitant]
     Active Substance: LEVOTHYROXINE\LEVOTHYROXINE SODIUM
     Dosage: MORNING PREFERABLY 30-60 M...
     Dates: start: 20230918
  9. CANDESARTAN [Concomitant]
     Active Substance: CANDESARTAN
     Dosage: AT NIGHT - TO PUT INTO...
     Dates: start: 20240304
  10. DOXYCYCLINE [Concomitant]
     Active Substance: DOXYCYCLINE\DOXYCYCLINE HYCLATE
     Dosage: TWO TO BE TAKEN ON THE FIRST DAY THEN ONE TO BE..., DURATION: 28 DAYS
     Dates: start: 20240327, end: 20240424
  11. CLARITHROMYCIN [Concomitant]
     Active Substance: CLARITHROMYCIN
     Dosage: (WITH HOLD SIMVASTAT...
     Dates: start: 20240215, end: 20240315
  12. RAMIPRIL [Concomitant]
     Active Substance: RAMIPRIL
     Dosage: NIGHT, DURATION: 322 DAYS
     Dates: start: 20230417, end: 20240304
  13. FUROSEMIDE [Concomitant]
     Active Substance: FUROSEMIDE
     Dosage: MORNING AND MEASURE HOME BLOOD PRESSURE AFTER 2 WEEKS
     Dates: start: 20240417
  14. LERCANIDIPINE HYDROCHLORIDE [Concomitant]
     Active Substance: LERCANIDIPINE HYDROCHLORIDE
     Indication: Blood pressure measurement
     Dosage: MORNING
     Dates: start: 20240513

REACTIONS (2)
  - Oedema peripheral [Recovering/Resolving]
  - Joint swelling [Unknown]

NARRATIVE: CASE EVENT DATE: 20240301
